FAERS Safety Report 24653906 (Version 2)
Quarter: 2025Q3

REPORT INFORMATION
  Report Type: Spontaneous
  Country: US (occurrence: US)
  Receive Date: 20241122
  Receipt Date: 20250816
  Transmission Date: 20251021
  Serious: No
  Sender: ALEXION PHARMACEUTICALS
  Company Number: US-ASTRAZENECA-202411USA017533US

PATIENT
  Sex: Male

DRUGS (3)
  1. CRESTOR [Suspect]
     Active Substance: ROSUVASTATIN CALCIUM
     Dosage: 40 MILLIGRAM, QD
     Dates: start: 20240619
  2. VYNDAMAX [Suspect]
     Active Substance: TAFAMIDIS
     Indication: Atrial fibrillation
     Dosage: 61 MILLIGRAM, QD
     Dates: start: 20240327
  3. TORSEMIDE [Suspect]
     Active Substance: TORSEMIDE
     Dosage: UNK, QD

REACTIONS (4)
  - Atrial flutter [Unknown]
  - Dyspnoea [Unknown]
  - Weight increased [Unknown]
  - Blood creatinine increased [Unknown]
